FAERS Safety Report 14107901 (Version 1)
Quarter: 2017Q4

REPORT INFORMATION
  Report Type: Spontaneous
  Country: US (occurrence: US)
  Receive Date: 20171019
  Receipt Date: 20171019
  Transmission Date: 20180321
  Serious: Yes (Hospitalization)
  Sender: FDA-Public Use
  Company Number: None

PATIENT
  Age: 90 Year
  Sex: Male
  Weight: 80 kg

DRUGS (1)
  1. METFORMIN [Suspect]
     Active Substance: METFORMIN HYDROCHLORIDE
     Indication: TYPE 2 DIABETES MELLITUS
     Dates: start: 20170531, end: 20171011

REACTIONS (4)
  - Constipation [None]
  - Documented hypersensitivity to administered product [None]
  - Abdominal discomfort [None]
  - Lactic acidosis [None]

NARRATIVE: CASE EVENT DATE: 20171011
